FAERS Safety Report 19228708 (Version 1)
Quarter: 2021Q2

REPORT INFORMATION
  Report Type: Other
  Country: BR (occurrence: BR)
  Receive Date: 20210506
  Receipt Date: 20210506
  Transmission Date: 20210717
  Serious: Yes (Hospitalization, Other)
  Sender: FDA-Public Use
  Company Number: BR-ROCHE-2824932

PATIENT
  Age: 64 Year
  Sex: Male

DRUGS (5)
  1. PREDNISOLONE. [Concomitant]
     Active Substance: PREDNISOLONE
     Indication: ASTHMA
     Dosage: 1 DF (START DATE WAS 2 YEARS AGO),(EVERY 8 HOURS)
     Route: 048
  2. XOLAIR [Suspect]
     Active Substance: OMALIZUMAB
     Indication: ASTHMA
     Dosage: 150 MG, (4 APLLICATIONS OF 150MG)
     Route: 058
     Dates: start: 2018
  3. SPIRIVA [Concomitant]
     Active Substance: TIOTROPIUM BROMIDE MONOHYDRATE
     Indication: ASTHMA
     Dosage: UNK,(02 SUCTION),(IN THE EVENING)
     Route: 055
     Dates: start: 2018
  4. AEROLIN [Concomitant]
     Active Substance: ALBUTEROL
     Indication: ASTHMA
     Dosage: UNK, (2 OR 3 APPLICATIONS)
     Route: 055
     Dates: start: 2018
  5. SERETIDE [Concomitant]
     Active Substance: FLUTICASONE PROPIONATE\SALMETEROL XINAFOATE
     Indication: ASTHMA
     Dosage: UNK, BID,(IN THE MORNING AND IN THE EVENING),(01 SUCTION)
     Route: 055
     Dates: start: 2018

REACTIONS (7)
  - Pneumonia [Recovered/Resolved]
  - Blood glucose increased [Unknown]
  - Rectal haemorrhage [Recovered/Resolved]
  - Dyspnoea [Recovered/Resolved]
  - Type 1 diabetes mellitus [Not Recovered/Not Resolved]
  - Visual impairment [Not Recovered/Not Resolved]
  - Anorectal disorder [Not Recovered/Not Resolved]

NARRATIVE: CASE EVENT DATE: 2018
